FAERS Safety Report 9387301 (Version 1)
Quarter: 2013Q3

REPORT INFORMATION
  Report Type: Spontaneous
  Country: JP (occurrence: None)
  Receive Date: 20130702
  Receipt Date: 20130702
  Transmission Date: 20140515
  Serious: Yes (Other)
  Sender: FDA-Public Use
  Company Number: FK201302264

PATIENT
  Age: 30 Year
  Sex: Female

DRUGS (5)
  1. METHOTREXATE (MANUFACTURER UNKNOWN) (METHOTREXATE) (METHOTREXATE) [Suspect]
     Indication: T-CELL TYPE ACUTE LEUKAEMIA
  2. FUROSEMIDE [Suspect]
     Indication: PRODUCT USED FOR UNKNOWN INDICATION
  3. CYTARABINE (CYTARABINE) [Concomitant]
  4. LEUCOVORIN (CALCIUM FOLINATE) [Concomitant]
  5. ACETAZOLAMIDE (ACETAZOLAMIDE) [Concomitant]

REACTIONS (9)
  - Drug interaction [None]
  - Cheilitis [None]
  - Malaise [None]
  - Oedema [None]
  - Aspartate aminotransferase increased [None]
  - Alanine aminotransferase increased [None]
  - Paronychia [None]
  - Diarrhoea [None]
  - Drug clearance decreased [None]
